FAERS Safety Report 15703223 (Version 1)
Quarter: 2018Q4

REPORT INFORMATION
  Report Type: Spontaneous
  Country: US (occurrence: US)
  Receive Date: 20181210
  Receipt Date: 20181210
  Transmission Date: 20190205
  Serious: No
  Sender: FDA-Public Use
  Company Number: US-009507513-1811USA005145

PATIENT
  Sex: Female

DRUGS (2)
  1. ACTONEL [Suspect]
     Active Substance: RISEDRONATE SODIUM
  2. FOSAMAX [Suspect]
     Active Substance: ALENDRONATE SODIUM
     Route: 048

REACTIONS (1)
  - Adverse event [Unknown]
